FAERS Safety Report 19097568 (Version 1)
Quarter: 2021Q2

REPORT INFORMATION
  Report Type: Spontaneous
  Country: US (occurrence: US)
  Receive Date: 20210406
  Receipt Date: 20210406
  Transmission Date: 20210717
  Serious: Yes (Hospitalization)
  Sender: FDA-Public Use
  Company Number: None

PATIENT
  Age: 70 Year
  Sex: Female

DRUGS (19)
  1. LYRICA [Concomitant]
     Active Substance: PREGABALIN
     Dates: start: 20190313
  2. FLUTICASONE. [Concomitant]
     Active Substance: FLUTICASONE
     Dates: start: 20190625
  3. PROVIGIL [Concomitant]
     Active Substance: MODAFINIL
     Dates: start: 20190313
  4. CENTRUM [Concomitant]
     Active Substance: VITAMINS
     Dates: start: 20190313
  5. AMITRIPTYLIN [Concomitant]
     Active Substance: AMITRIPTYLINE
     Dates: start: 20200227
  6. HYDROCHLOROT [Concomitant]
     Active Substance: HYDROCHLOROTHIAZIDE
     Dates: start: 20190625
  7. ASPIRIN. [Concomitant]
     Active Substance: ASPIRIN
     Dates: start: 20190625
  8. FISH OIL [Concomitant]
     Active Substance: FISH OIL
     Dates: start: 20190313
  9. BETAMETH [Concomitant]
     Dates: start: 20190625
  10. VITAMIN B12 [Concomitant]
     Active Substance: CYANOCOBALAMIN
     Dates: start: 20190313
  11. NAPROXEN. [Concomitant]
     Active Substance: NAPROXEN
     Dates: start: 20190625
  12. CYCLOBENZAPR [Concomitant]
     Active Substance: CYCLOBENZAPRINE
     Dates: start: 20190313
  13. CLOTRIMAZOLE. [Concomitant]
     Active Substance: CLOTRIMAZOLE
     Dates: start: 20190625
  14. METOPROLOL TARTRATE. [Concomitant]
     Active Substance: METOPROLOL TARTRATE
     Dates: start: 20190313
  15. BACLOFEN. [Concomitant]
     Active Substance: BACLOFEN
     Dates: start: 20190313
  16. CALCIUM [Concomitant]
     Active Substance: CALCIUM
     Dates: start: 20200227
  17. DALFAMPRIDINE. [Suspect]
     Active Substance: DALFAMPRIDINE
     Indication: MULTIPLE SCLEROSIS
     Route: 048
     Dates: start: 20190214
  18. WELCHOL [Concomitant]
     Active Substance: COLESEVELAM HYDROCHLORIDE
     Dates: start: 20190313
  19. VITAMIN D [Concomitant]
     Active Substance: VITAMIN D NOS
     Dates: start: 20190313

REACTIONS (1)
  - Therapy interrupted [None]

NARRATIVE: CASE EVENT DATE: 20210405
